FAERS Safety Report 9981317 (Version 1)
Quarter: 2014Q1

REPORT INFORMATION
  Report Type: Spontaneous
  Country: US (occurrence: None)
  Receive Date: 20140305
  Receipt Date: 20140305
  Transmission Date: 20141002
  Serious: Yes (Hospitalization)
  Sender: FDA-Public Use
  Company Number: AUR-APL-2014-01909

PATIENT
  Age: 41 Year
  Sex: Female

DRUGS (2)
  1. OXYCODONE [Suspect]
     Indication: PRODUCT USED FOR UNKNOWN INDICATION
     Dosage: INSUFFLATION
  2. AMOXICILLIN/CLAVULANATE(AMOXI-CLAVULANICO) [Concomitant]

REACTIONS (5)
  - Sinusitis [None]
  - Nasal necrosis [None]
  - Nasal abscess [None]
  - Drug abuse [None]
  - Wrong technique in drug usage process [None]
